FAERS Safety Report 21375002 (Version 2)
Quarter: 2022Q3

REPORT INFORMATION
  Report Type: Report from Study
  Country: TR (occurrence: TR)
  Receive Date: 20220926
  Receipt Date: 20220927
  Transmission Date: 20221027
  Serious: Yes (Death)
  Sender: FDA-Public Use
  Company Number: TR-NOVARTISPH-NVSC2022TR216036

PATIENT
  Age: 74 Year
  Sex: Female

DRUGS (1)
  1. ALPELISIB [Suspect]
     Active Substance: ALPELISIB
     Indication: Breast cancer
     Dosage: 300 UNK
     Route: 065
     Dates: start: 20220609, end: 20220825

REACTIONS (1)
  - Death [Fatal]

NARRATIVE: CASE EVENT DATE: 20220902
